FAERS Safety Report 9391028 (Version 1)
Quarter: 2013Q3

REPORT INFORMATION
  Report Type: Spontaneous
  Country: FR (occurrence: FR)
  Receive Date: 20130709
  Receipt Date: 20130709
  Transmission Date: 20140515
  Serious: Yes (Other)
  Sender: FDA-Public Use
  Company Number: FR-JNJFOC-20130703237

PATIENT
  Age: 42 Year
  Sex: Female

DRUGS (3)
  1. IXPRIM [Suspect]
     Indication: PAIN IN EXTREMITY
     Route: 048
     Dates: start: 201304, end: 20130516
  2. VOLTARENE [Suspect]
     Indication: PAIN IN EXTREMITY
     Route: 048
     Dates: start: 201304, end: 20130516
  3. MYOLASTAN [Suspect]
     Indication: PAIN IN EXTREMITY
     Route: 048
     Dates: start: 201304, end: 20130516

REACTIONS (1)
  - Face oedema [Recovered/Resolved]
